FAERS Safety Report 4558914-8 (Version None)
Quarter: 2005Q1

REPORT INFORMATION
  Report Type: 
  Country: None (occurrence: None)
  Receive Date: 20050119
  Receipt Date: 20050106
  Transmission Date: 20050727
  Serious: Yes (Hospitalization)
  Sender: FDA-Public Use
  Company Number: 236094K04USA

PATIENT
  Age: 38 Year
  Sex: Male

DRUGS (2)
  1. REBIF [Suspect]
     Indication: MULTIPLE SCLEROSIS
     Dosage: 44 MCG, 3 IN 1 WEEKS, SUBCUTANEOUS
     Route: 058
     Dates: start: 20040818
  2. MONOPRIL [Suspect]

REACTIONS (7)
  - BLINDNESS TRANSIENT [None]
  - DEAFNESS TRANSITORY [None]
  - DEHYDRATION [None]
  - FEELING HOT AND COLD [None]
  - HYPOTENSION [None]
  - INJECTION SITE MASS [None]
  - NECK PAIN [None]
